FAERS Safety Report 12475418 (Version 15)
Quarter: 2018Q3

REPORT INFORMATION
  Report Type: Report from Study
  Country: JP (occurrence: JP)
  Receive Date: 20160617
  Receipt Date: 20180830
  Transmission Date: 20181010
  Serious: Yes (Hospitalization, Congenital Anomaly)
  Sender: FDA-Public Use
  Company Number: PHJP2016JP016222

PATIENT
  Age: 0 Day
  Sex: Female
  Weight: 8.6 kg

DRUGS (6)
  1. ILARIS [Suspect]
     Active Substance: CANAKINUMAB
     Indication: FOETAL EXPOSURE DURING PREGNANCY
     Dosage: UNK
     Route: 064
  2. ILARIS [Suspect]
     Active Substance: CANAKINUMAB
     Indication: MUCKLE-WELLS SYNDROME
     Dosage: 22.5 MG, UNK
     Route: 058
     Dates: start: 20160527
  3. ILARIS [Suspect]
     Active Substance: CANAKINUMAB
     Dosage: 30 MG, UNK
     Route: 058
     Dates: start: 20161012
  4. ILARIS [Suspect]
     Active Substance: CANAKINUMAB
     Dosage: 30 MG, UNK
     Route: 058
     Dates: start: 20161207
  5. ILARIS [Suspect]
     Active Substance: CANAKINUMAB
     Dosage: 22.5 MG, UNK
     Route: 058
     Dates: start: 20160720
  6. ILARIS [Suspect]
     Active Substance: CANAKINUMAB
     Dosage: 22.5 MG, UNK
     Route: 058
     Dates: start: 20160831

REACTIONS (17)
  - Gene mutation [Not Recovered/Not Resolved]
  - Pyrexia [Recovering/Resolving]
  - Coating in mouth [Unknown]
  - Lymphadenitis [Unknown]
  - Pyrexia [Recovered/Resolved]
  - Pyrexia [Recovered/Resolved]
  - Bronchitis [Unknown]
  - Tonsillitis [Recovering/Resolving]
  - Maternal exposure during breast feeding [Unknown]
  - Drug administered to patient of inappropriate age [Unknown]
  - Tonsillar hypertrophy [Recovering/Resolving]
  - C-reactive protein increased [Recovering/Resolving]
  - Pharyngitis [Unknown]
  - Respiratory syncytial virus infection [Recovered/Resolved]
  - Inflammatory marker increased [Unknown]
  - Inflammation [Unknown]
  - Foetal exposure during pregnancy [Unknown]

NARRATIVE: CASE EVENT DATE: 20150813
